FAERS Safety Report 9735343 (Version 1)
Quarter: 2013Q4

REPORT INFORMATION
  Report Type: Spontaneous
  Country: FR (occurrence: FR)
  Receive Date: 20131206
  Receipt Date: 20131206
  Transmission Date: 20140711
  Serious: Yes (Death, Other)
  Sender: FDA-Public Use
  Company Number: FR-PFIZER INC-2013346883

PATIENT
  Age: 97 Year
  Sex: Female

DRUGS (2)
  1. LYRICA [Suspect]
     Dosage: UNK
  2. PARACETAMOL [Concomitant]
     Dosage: UNK

REACTIONS (6)
  - Death [Fatal]
  - Neutropenia [Unknown]
  - Agranulocytosis [Unknown]
  - Escherichia bacteraemia [Unknown]
  - Febrile neutropenia [Unknown]
  - C-reactive protein increased [Unknown]
